FAERS Safety Report 6674991-2 (Version None)
Quarter: 2010Q1

REPORT INFORMATION
  Report Type: 
  Country: None (occurrence: None)
  Receive Date: 20100331
  Receipt Date: 20091109
  Transmission Date: 20100710
  Serious: Yes (Other)
  Sender: FDA-Public Use
  Company Number: 2009274470

PATIENT
  Age: 84 Year
  Sex: Male
  Weight: 95 kg

DRUGS (10)
  1. SUTENT [Suspect]
     Indication: METASTATIC RENAL CELL CARCINOMA
     Dosage: 25 MG, 1X/DAY, ORAL
     Route: 048
     Dates: start: 20090904
  2. POTASSIUM (POTASSIUM) [Concomitant]
  3. FIBERCON (POLYCARBOPHIL CALCIUM) [Concomitant]
  4. CALCIUM (CALCIUM) [Concomitant]
  5. VITAMIN B COMPLEX TAB [Concomitant]
  6. VITAMIN D [Concomitant]
  7. TERAZOSIN HYDROCHLORIDE [Concomitant]
  8. HYDROCHLOROTHIAZIDE [Concomitant]
  9. TRAMADOL HCL [Concomitant]
  10. LASIX [Concomitant]

REACTIONS (2)
  - PLATELET COUNT DECREASED [None]
  - WHITE BLOOD CELL COUNT DECREASED [None]
